FAERS Safety Report 7979422-8 (Version None)
Quarter: 2011Q4

REPORT INFORMATION
  Report Type: 
  Country: None (occurrence: None)
  Receive Date: 20111214
  Receipt Date: 20111206
  Transmission Date: 20120403
  Serious: Yes (Other)
  Sender: FDA-Public Use
  Company Number: US-BAYER-2011-117961

PATIENT

DRUGS (2)
  1. ASPIRIN [Suspect]
     Route: 048
  2. ALEVE (CAPLET) [Suspect]
     Route: 048

REACTIONS (2)
  - DRUG HYPERSENSITIVITY [None]
  - ANAPHYLACTIC SHOCK [None]
